FAERS Safety Report 24449709 (Version 2)
Quarter: 2024Q4

REPORT INFORMATION
  Report Type: Report from Study
  Country: US (occurrence: US)
  Receive Date: 20241017
  Receipt Date: 20241024
  Transmission Date: 20250115
  Serious: Yes (Other)
  Sender: GILEAD
  Company Number: US-GILEAD-2024-0691188

PATIENT
  Sex: Male

DRUGS (1)
  1. AZTREONAM LYSINE [Suspect]
     Active Substance: AZTREONAM LYSINE
     Indication: Cystic fibrosis
     Dosage: 75 MG, TID [75MG INHALE 1 AMPULE 3 TIMES A DAY FOR 28 DAYS, 28 DAYS OFF.]
     Route: 055
     Dates: start: 20230314

REACTIONS (3)
  - Pneumonia [Not Recovered/Not Resolved]
  - Cardiac pacemaker insertion [Unknown]
  - Heart valve replacement [Unknown]
